FAERS Safety Report 19265499 (Version 1)
Quarter: 2021Q2

REPORT INFORMATION
  Report Type: Spontaneous
  Country: GB (occurrence: GB)
  Receive Date: 20210517
  Receipt Date: 20210517
  Transmission Date: 20210717
  Serious: Yes (Other)
  Sender: FDA-Public Use
  Company Number: GB-ACCORD-225159

PATIENT
  Age: 47 Year
  Sex: Female

DRUGS (4)
  1. RAMIPRIL. [Suspect]
     Active Substance: RAMIPRIL
     Indication: HYPERTENSION
     Route: 048
     Dates: start: 202101, end: 20210422
  2. FEMODETTE [Concomitant]
  3. NASOBEC AQUEOUS [Concomitant]
     Active Substance: BECLOMETHASONE DIPROPIONATE
  4. FEXOFENADINE [Concomitant]
     Active Substance: FEXOFENADINE HYDROCHLORIDE

REACTIONS (4)
  - Malaise [Recovering/Resolving]
  - Oropharyngeal pain [Recovering/Resolving]
  - Rhinorrhoea [Recovering/Resolving]
  - Cough [Recovering/Resolving]

NARRATIVE: CASE EVENT DATE: 202103
